FAERS Safety Report 7979520-9 (Version None)
Quarter: 2011Q4

REPORT INFORMATION
  Report Type: 
  Country: None (occurrence: None)
  Receive Date: 20111214
  Receipt Date: 20111206
  Transmission Date: 20120403
  Serious: Yes (Other)
  Sender: FDA-Public Use
  Company Number: PHEH2011US011058

PATIENT
  Sex: Female

DRUGS (1)
  1. VIVELLE-DOT [Suspect]
     Indication: HORMONE REPLACEMENT THERAPY
     Route: 062

REACTIONS (8)
  - MASTITIS [None]
  - ANXIETY [None]
  - BREAST PAIN [None]
  - POOR QUALITY SLEEP [None]
  - HOT FLUSH [None]
  - RASH [None]
  - BREAST MASS [None]
  - BREAST INFLAMMATION [None]
